FAERS Safety Report 17178871 (Version 3)
Quarter: 2020Q1

REPORT INFORMATION
  Report Type: Spontaneous
  Country: ES (occurrence: ES)
  Receive Date: 20191219
  Receipt Date: 20200106
  Transmission Date: 20200409
  Serious: Yes (Hospitalization)
  Sender: FDA-Public Use
  Company Number: ES-JNJFOC-20191225228

PATIENT
  Age: 20 Year
  Sex: Male

DRUGS (3)
  1. IBUPROFEN. [Suspect]
     Active Substance: IBUPROFEN
     Indication: ALCOHOLIC HANGOVER
     Route: 048
     Dates: start: 20190501, end: 20190529
  2. DEXKETOPROFEN [Suspect]
     Active Substance: DEXKETOPROFEN
     Indication: ALCOHOLIC HANGOVER
     Dosage: DRUG START PERIOD 29 (DAYS), DRUG LAST PERIOD 1 (DAYS)
     Route: 048
     Dates: start: 20190501, end: 20190529
  3. DEXKETOPROFEN TROMETAMOL [Suspect]
     Active Substance: DEXKETOPROFEN TROMETAMOL
     Indication: ALCOHOLIC HANGOVER
     Route: 048
     Dates: start: 20190501, end: 20190529

REACTIONS (2)
  - Acute kidney injury [Recovering/Resolving]
  - Tubulointerstitial nephritis [Recovering/Resolving]

NARRATIVE: CASE EVENT DATE: 20190529
